FAERS Safety Report 16736351 (Version 1)
Quarter: 2019Q3

REPORT INFORMATION
  Report Type: Spontaneous
  Country: US (occurrence: US)
  Receive Date: 20190823
  Receipt Date: 20190823
  Transmission Date: 20191005
  Serious: No
  Sender: FDA-Public Use
  Company Number: US-SA-2019SA234574

PATIENT
  Sex: Male

DRUGS (1)
  1. SELSUN BLUE ACTIVE 3-IN-1 [Suspect]
     Active Substance: SALICYLIC ACID

REACTIONS (4)
  - Application site burn [Unknown]
  - Skin irritation [Unknown]
  - Skin exfoliation [Unknown]
  - Pruritus [Unknown]
